FAERS Safety Report 17790797 (Version 1)
Quarter: 2020Q2

REPORT INFORMATION
  Report Type: Spontaneous
  Country: NO (occurrence: NO)
  Receive Date: 20200515
  Receipt Date: 20200515
  Transmission Date: 20200714
  Serious: Yes (Other)
  Sender: FDA-Public Use
  Company Number: NVSC2020NO130449

PATIENT
  Age: 64 Year
  Sex: Male
  Weight: 105 kg

DRUGS (3)
  1. AMARYL [Concomitant]
     Active Substance: GLIMEPIRIDE
     Indication: PRODUCT USED FOR UNKNOWN INDICATION
     Dosage: UNK
     Route: 065
     Dates: start: 201902
  2. METOPROLOL SANDOZ [Suspect]
     Active Substance: METOPROLOL
     Indication: EXTRASYSTOLES
     Dosage: 50 MG, QD (IN THE MORNING)
     Route: 065
     Dates: start: 20200123
  3. ZYLORIC [Concomitant]
     Active Substance: ALLOPURINOL
     Indication: PRODUCT USED FOR UNKNOWN INDICATION
     Dosage: UNK
     Route: 065

REACTIONS (17)
  - Diabetes mellitus [Not Recovered/Not Resolved]
  - Dissociation [Not Recovered/Not Resolved]
  - Dry mouth [Not Recovered/Not Resolved]
  - Fatigue [Not Recovered/Not Resolved]
  - Dyspnoea exertional [Unknown]
  - Paraesthesia [Not Recovered/Not Resolved]
  - Peripheral coldness [Unknown]
  - Dyspnoea [Not Recovered/Not Resolved]
  - Blood glucose increased [Unknown]
  - Anxiety [Not Recovered/Not Resolved]
  - Taste disorder [Not Recovered/Not Resolved]
  - Headache [Not Recovered/Not Resolved]
  - Eye irritation [Unknown]
  - Hyperhidrosis [Unknown]
  - Skin warm [Unknown]
  - Memory impairment [Not Recovered/Not Resolved]
  - Abdominal pain upper [Unknown]

NARRATIVE: CASE EVENT DATE: 20200124
